FAERS Safety Report 15918669 (Version 1)
Quarter: 2019Q1

REPORT INFORMATION
  Report Type: Spontaneous
  Country: CN (occurrence: CN)
  Receive Date: 20190205
  Receipt Date: 20190205
  Transmission Date: 20190417
  Serious: Yes (Other)
  Sender: FDA-Public Use
  Company Number: CN-ASTRAZENECA-2019SE20932

PATIENT
  Sex: Male
  Weight: 40 kg

DRUGS (8)
  1. SODIUM CHLORIDE. [Concomitant]
     Active Substance: SODIUM CHLORIDE
     Indication: DRUG THERAPY
     Dates: start: 20181210, end: 20181216
  2. OMEPRAZOLE SODIUM [Concomitant]
     Active Substance: OMEPRAZOLE SODIUM
     Indication: HYPERCHLORHYDRIA
     Route: 041
     Dates: start: 20181210, end: 20181210
  3. ESOMEPRAZOLE SODIUM. [Suspect]
     Active Substance: ESOMEPRAZOLE SODIUM
     Indication: GASTROINTESTINAL HAEMORRHAGE
     Route: 042
     Dates: start: 20181210, end: 20181214
  4. ROSUVASTATIN CALCIUM. [Concomitant]
     Active Substance: ROSUVASTATIN CALCIUM
     Indication: ARTERIOSCLEROSIS
     Route: 048
     Dates: start: 20181207, end: 20181208
  5. RABEPRAZOLE SODIUM. [Concomitant]
     Active Substance: RABEPRAZOLE SODIUM
     Indication: HYPERCHLORHYDRIA
     Route: 048
     Dates: start: 20181207, end: 20181210
  6. SOMATOSTATIN [Concomitant]
     Active Substance: SOMATOSTATIN
     Indication: GASTROINTESTINAL HAEMORRHAGE
     Dates: start: 20181210, end: 20181216
  7. CLOPIDOGREL SULFATE [Concomitant]
     Active Substance: CLOPIDOGREL BISULFATE
     Indication: THROMBOSIS PROPHYLAXIS
     Route: 048
     Dates: start: 20181207, end: 20181208
  8. SODIUM CHLORIDE. [Concomitant]
     Active Substance: SODIUM CHLORIDE
     Indication: DRUG THERAPY
     Dates: start: 20181210, end: 20181210

REACTIONS (1)
  - Mental disorder [Recovered/Resolved]
